FAERS Safety Report 5491783-0 (Version None)
Quarter: 2007Q4

REPORT INFORMATION
  Report Type: 
  Country: None (occurrence: None)
  Receive Date: 20071019
  Receipt Date: 20071019
  Transmission Date: 20080405
  Serious: No
  Sender: FDA-Public Use
  Company Number: None

PATIENT
  Age: 76 Year
  Sex: Female

DRUGS (1)
  1. ZOSYN [Suspect]

REACTIONS (9)
  - CHILLS [None]
  - HAEMOPTYSIS [None]
  - HYPERTENSION [None]
  - HYPOXIA [None]
  - INJECTION SITE ERYTHEMA [None]
  - INJECTION SITE INFLAMMATION [None]
  - INJECTION SITE SWELLING [None]
  - PYREXIA [None]
  - VOMITING [None]
